FAERS Safety Report 8456844-2 (Version None)
Quarter: 2012Q2

REPORT INFORMATION
  Report Type: 
  Country: None (occurrence: None)
  Receive Date: 20120621
  Receipt Date: 20120615
  Transmission Date: 20120825
  Serious: Yes (Death, Life-Threatening, Hospitalization)
  Sender: FDA-Public Use
  Company Number: US-CELGENEUS-163-21660-12051642

PATIENT
  Sex: Female
  Weight: 85.8 kg

DRUGS (51)
  1. ABRAXANE [Suspect]
     Dosage: 228 MILLIGRAM
     Route: 041
     Dates: start: 20120315
  2. HYDROCODONE [Concomitant]
     Indication: ARTHRITIS
     Dosage: 7.5 MILLIGRAM
     Route: 048
     Dates: end: 20120526
  3. ALLOPURINOL [Concomitant]
     Dosage: 200 MILLIGRAM
     Route: 048
     Dates: start: 20120519, end: 20120528
  4. ALLOPURINOL [Concomitant]
     Dosage: 100 MILLIGRAM
     Route: 048
     Dates: start: 20120528, end: 20120614
  5. ZOSYN [Concomitant]
     Route: 065
     Dates: start: 20120527
  6. LEVOFLOXACIN [Concomitant]
     Route: 065
     Dates: start: 20120525, end: 20120526
  7. ACETYLCYSTEINE [Concomitant]
     Dosage: 600 MILLIGRAM
     Route: 041
     Dates: start: 20120606, end: 20120611
  8. LANSOPRAZOLE [Concomitant]
     Dosage: 30 MILLIGRAM
     Route: 065
     Dates: start: 20120612, end: 20120614
  9. LANSOPRAZOLE [Concomitant]
     Dosage: 20-80MG
     Route: 041
     Dates: start: 20120601, end: 20120606
  10. VECURONIUM BROMIDE [Concomitant]
     Indication: THERAPEUTIC PROCEDURE
     Dosage: 6 MILLIGRAM
     Route: 041
     Dates: start: 20120610, end: 20120610
  11. DILAUDID [Concomitant]
     Indication: THERAPEUTIC PROCEDURE
     Dosage: .4 MILLIGRAM
     Route: 041
     Dates: start: 20120614, end: 20120614
  12. LORAZEPAM [Concomitant]
     Indication: ANXIETY
     Dosage: .5 MILLIGRAM
     Route: 048
     Dates: end: 20120614
  13. CITALOPRAM HYDROBROMIDE [Concomitant]
     Indication: ANXIETY
     Dosage: 1 TABLET
     Route: 048
     Dates: end: 20120614
  14. NYSTATIN [Concomitant]
     Dosage: 180 MILLIGRAM
     Route: 048
     Dates: start: 20120404, end: 20120412
  15. NEULASTA [Concomitant]
     Indication: NEUTROPENIA
     Dosage: 6 MILLIGRAM
     Route: 058
     Dates: start: 20120427, end: 20120427
  16. POTASSIUM CHLORIDE [Concomitant]
     Dosage: 20 MILLIEQUIVALENTS
     Route: 065
     Dates: start: 20120510, end: 20120526
  17. ZOSYN [Concomitant]
     Dosage: 4.5 GRAM
     Route: 041
     Dates: start: 20120525, end: 20120608
  18. HEPARIN [Concomitant]
     Route: 065
     Dates: start: 20120525, end: 20120525
  19. HEPARIN [Concomitant]
     Dosage: 5000 UNITS
     Route: 058
     Dates: start: 20120526, end: 20120527
  20. EPINEPHRINE [Concomitant]
     Dosage: 1 MILLIGRAM
     Route: 041
     Dates: start: 20120609, end: 20120609
  21. MORPHINE [Concomitant]
     Dosage: 2 MILLIGRAM
     Route: 041
     Dates: start: 20120605, end: 20120606
  22. PROPOFOL [Concomitant]
     Dosage: 7.65 MILLILITER
     Route: 041
     Dates: start: 20120606, end: 20120614
  23. TRAZODONE HCL [Concomitant]
     Indication: ANXIETY
     Dosage: 1 TABLET
     Route: 048
     Dates: end: 20120606
  24. NYSTATIN [Concomitant]
     Indication: MUCOSAL INFECTION
  25. DESMOPRESSIN ACETATE [Concomitant]
     Dosage: 20 MICROGRAM
     Route: 041
     Dates: start: 20120609, end: 20120609
  26. VANCOMYCIN [Concomitant]
     Dosage: 1 GRAM
     Route: 041
     Dates: start: 20120526, end: 20120526
  27. VANCOMYCIN [Concomitant]
     Dosage: 1.5 GRAM
     Route: 041
     Dates: start: 20120527, end: 20120527
  28. CHLORHEXIDINE GLUCONATE [Concomitant]
     Indication: ORAL DISORDER
     Dosage: 15 MILLILITER
     Route: 065
     Dates: start: 20120612, end: 20120614
  29. COMPAZINE [Concomitant]
     Indication: NAUSEA
     Dosage: 10 MILLIGRAM
     Route: 048
     Dates: start: 20120315, end: 20120614
  30. ZOFRAN [Concomitant]
     Indication: NAUSEA
     Dosage: 8 MILLIGRAM
     Route: 048
     Dates: start: 20120315, end: 20120614
  31. AUGMENTIN '125' [Concomitant]
     Indication: STENT PLACEMENT
     Dosage: 1 TABLET
     Route: 048
     Dates: start: 20120519, end: 20120524
  32. ALBUMIN (HUMAN) [Concomitant]
     Dosage: 25 GRAM
     Route: 041
     Dates: start: 20120608, end: 20120610
  33. SODIUM BICARBONATE [Concomitant]
     Dosage: 50 MILLIEQUIVALENTS
     Route: 041
     Dates: start: 20120609, end: 20120609
  34. GEMCITABINE [Suspect]
     Dosage: 1820 MILLIGRAM
     Route: 041
     Dates: start: 20120315
  35. GEMCITABINE [Suspect]
     Dosage: 1820 MILLIGRAM
     Route: 041
     Dates: start: 20120510, end: 20120524
  36. NEULASTA [Concomitant]
  37. FLOMAX [Concomitant]
     Dosage: .4 MILLIGRAM
     Route: 048
     Dates: start: 20120519, end: 20120526
  38. WHOLE BLOOD [Concomitant]
     Dosage: 2 UNITS
     Route: 041
     Dates: start: 20120426, end: 20120503
  39. TOLTERODINE TARTRATE [Concomitant]
     Dosage: 4 MILLIGRAM
     Route: 048
     Dates: start: 20120528, end: 20120611
  40. FENTANYL [Concomitant]
     Dosage: 2 MILLILITER
     Route: 041
     Dates: start: 20120606, end: 20120614
  41. ABRAXANE [Suspect]
     Dosage: 228 MILLIGRAM
     Route: 041
     Dates: start: 20120510, end: 20120524
  42. LISINOPRIL [Concomitant]
     Indication: HYPERTENSION
     Dosage: 10/12.5MG
     Route: 048
     Dates: end: 20120513
  43. PANTOPRAZOLE [Concomitant]
     Dosage: 40 MILLIGRAM
     Route: 041
     Dates: start: 20120525, end: 20120528
  44. PANTOPRAZOLE [Concomitant]
     Dosage: 4 MILLIGRAM
     Route: 048
     Dates: start: 20120530, end: 20120606
  45. HEPARIN [Concomitant]
     Dosage: 18 UNITS
     Route: 041
     Dates: start: 20120527, end: 20120530
  46. CALCIUM GLUCONATE [Concomitant]
     Dosage: 1 GRAM
     Route: 041
     Dates: start: 20120526, end: 20120602
  47. INSULIN LISPRO [Concomitant]
     Route: 065
     Dates: start: 20120529, end: 20120614
  48. LANSOPRAZOLE [Concomitant]
     Dosage: 4 MILLIGRAM
     Route: 041
     Dates: start: 20120526, end: 20120527
  49. CELEBREX [Concomitant]
     Indication: ARTHRITIS
     Dosage: 200 MILLIGRAM
     Route: 048
     Dates: end: 20120526
  50. POTASSIUM CHLORIDE [Concomitant]
     Dosage: 10 MILLIEQUIVALENTS
     Route: 041
     Dates: start: 20120527, end: 20120528
  51. AZITHROMYCIN [Concomitant]
     Dosage: 500 MILLIGRAM
     Route: 041
     Dates: start: 20120528, end: 20120530

REACTIONS (5)
  - PNEUMONITIS [None]
  - HYPERURICAEMIA [None]
  - ANAEMIA [None]
  - RENAL FAILURE ACUTE [None]
  - NEPHROLITHIASIS [None]
